FAERS Safety Report 7121315-2 (Version None)
Quarter: 2010Q4

REPORT INFORMATION
  Report Type: 
  Country: None (occurrence: None)
  Receive Date: 20101119
  Receipt Date: 20101119
  Transmission Date: 20110411
  Serious: Yes (Life-Threatening, Hospitalization)
  Sender: FDA-Public Use
  Company Number: None

PATIENT
  Age: 27 Year
  Sex: Female

DRUGS (3)
  1. HUMALOG [Suspect]
     Indication: TYPE 1 DIABETES MELLITUS
     Dosage: USING 35-50 UNITS IN PUMP DAILY
  2. LANTUS [Concomitant]
  3. OCELLA [Concomitant]

REACTIONS (3)
  - BLOOD GLUCOSE INCREASED [None]
  - KETOACIDOSIS [None]
  - MALAISE [None]
